FAERS Safety Report 8221618-4 (Version None)
Quarter: 2012Q1

REPORT INFORMATION
  Report Type: 
  Country: None (occurrence: None)
  Receive Date: 20120320
  Receipt Date: 20120315
  Transmission Date: 20120608
  Serious: Yes (Other)
  Sender: FDA-Public Use
  Company Number: JP-EISAI INC-E2090-02035-SPO-JP

PATIENT
  Age: 9 Year
  Sex: Female

DRUGS (5)
  1. VALPROIC ACID [Concomitant]
     Indication: CONVULSION
  2. PHENOBARBITAL TAB [Concomitant]
     Indication: CONVULSION
     Dosage: UNKNOWN
  3. ZONISAMIDE [Suspect]
     Indication: CONVULSION
     Dosage: UNKNOWN
     Route: 048
  4. PHENYTOIN [Concomitant]
     Indication: CONVULSION
     Dosage: DOSE REDUCED, THEN DISCONTINUED.
  5. PHENOBARBITAL TAB [Concomitant]
     Dosage: UNKNOWN

REACTIONS (2)
  - HYPOTHYROIDISM [None]
  - FAILURE TO THRIVE [None]
